FAERS Safety Report 11687470 (Version 1)
Quarter: 2015Q4

REPORT INFORMATION
  Report Type: Spontaneous
  Country: CN (occurrence: CN)
  Receive Date: 20151030
  Receipt Date: 20151030
  Transmission Date: 20160304
  Serious: Yes (Hospitalization)
  Sender: FDA-Public Use
  Company Number: CN-JNJFOC-20151013589

PATIENT
  Age: 60 Year
  Sex: Male
  Weight: 70 kg

DRUGS (2)
  1. BANDAGE [Suspect]
     Active Substance: BENZALKONIUM CHLORIDE
     Indication: INFECTION
     Route: 061
     Dates: start: 20150506, end: 20150509
  2. HYALURONIC ACID [Suspect]
     Active Substance: HYALURONIC ACID
     Indication: PROPHYLAXIS
     Route: 047
     Dates: start: 20150506, end: 20150509

REACTIONS (3)
  - Dermatitis allergic [Recovered/Resolved]
  - Erythema [Recovered/Resolved]
  - Local swelling [Recovered/Resolved]

NARRATIVE: CASE EVENT DATE: 20150509
